FAERS Safety Report 17373156 (Version 1)
Quarter: 2020Q1

REPORT INFORMATION
  Report Type: Spontaneous
  Country: US (occurrence: US)
  Receive Date: 20200205
  Receipt Date: 20200205
  Transmission Date: 20200409
  Serious: No
  Sender: FDA-Public Use
  Company Number: US-FRESENIUS MEDICAL CARE RENAL THERAPIES GROUP-FMC-2001-000080

PATIENT
  Sex: Female

DRUGS (18)
  1. ZETIA [Concomitant]
     Active Substance: EZETIMIBE
  2. VELPHORO [Concomitant]
     Active Substance: FERRIC OXYHYDROXIDE
  3. TUMS [Concomitant]
     Active Substance: CALCIUM CARBONATE
  4. NEURONTIN [Concomitant]
     Active Substance: GABAPENTIN
  5. ASPIRIN. [Concomitant]
     Active Substance: ASPIRIN
  6. COZAAR [Concomitant]
     Active Substance: LOSARTAN POTASSIUM
  7. SPIRIVA [Concomitant]
     Active Substance: TIOTROPIUM BROMIDE MONOHYDRATE
  8. VITAMIN D3 [Concomitant]
     Active Substance: CHOLECALCIFEROL
  9. SYMBICORT [Concomitant]
     Active Substance: BUDESONIDE\FORMOTEROL FUMARATE DIHYDRATE
  10. VENTOLIN [Concomitant]
     Active Substance: ALBUTEROL SULFATE
  11. DELFLEX WITH DEXTROSE 1.5% LOW MAGNESIUM LOW CALCIUM [Suspect]
     Active Substance: CALCIUM CHLORIDE\DEXTROSE\MAGNESIUM CHLORIDE\SODIUM CHLORIDE\SODIUM LACTATE
     Indication: END STAGE RENAL DISEASE
     Dosage: 5 EXCHANGES, FILL VOLUME = 2000 ML, NO LAST FILL, NO DAYTIME EXCHANGE
     Route: 033
     Dates: start: 20171101
  12. AMLODIPINE [Concomitant]
     Active Substance: AMLODIPINE BESYLATE
  13. CLARITIN [Concomitant]
     Active Substance: LORATADINE
  14. SINGULAIR [Concomitant]
     Active Substance: MONTELUKAST SODIUM
  15. DELFLEX WITH DEXTROSE 2.5% LOW MAGNESIUM LOW CALCIUM [Suspect]
     Active Substance: CALCIUM CHLORIDE\DEXTROSE\MAGNESIUM CHLORIDE\SODIUM CHLORIDE\SODIUM LACTATE
     Indication: END STAGE RENAL DISEASE
     Dosage: 5 EXCHANGES, FILL VOLUME = 2000 ML, NO LAST FILL, NO DAYTIME EXCHANGE
     Route: 033
     Dates: start: 20171101
  16. AZELASTINE INHALER [Concomitant]
  17. CRESTOR [Concomitant]
     Active Substance: ROSUVASTATIN CALCIUM
  18. DELFLEX WITH DEXTROSE 4.25% LOW MAGNESIUM LOW CALCIUM [Suspect]
     Active Substance: CALCIUM CHLORIDE\DEXTROSE\MAGNESIUM CHLORIDE\SODIUM CHLORIDE\SODIUM LACTATE
     Indication: END STAGE RENAL DISEASE
     Dosage: 5 EXCHANGES, FILL VOLUME = 2000 ML, NO LAST FILL, NO DAYTIME EXCHANGE.
     Route: 033
     Dates: start: 20171101

REACTIONS (1)
  - Umbilical hernia repair [Recovered/Resolved]
